FAERS Safety Report 5372245-8 (Version None)
Quarter: 2007Q2

REPORT INFORMATION
  Report Type: 
  Country: None (occurrence: None)
  Receive Date: 20070615
  Receipt Date: 20070215
  Transmission Date: 20071010
  Serious: Yes (Other)
  Sender: FDA-Public Use
  Company Number: 200619885US

PATIENT
  Age: 53 Year
  Sex: Female

DRUGS (5)
  1. LANTUS [Suspect]
     Indication: DIABETES MELLITUS NON-INSULIN-DEPENDENT
     Dosage: 20 U
     Dates: start: 20061205
  2. LANTUS [Suspect]
     Indication: DIABETES MELLITUS NON-INSULIN-DEPENDENT
     Dates: start: 20061205
  3. METFORMIN HYDROCHLORIDE, ROSIGLITAZONE MALEATE  (AVANDAMET) [Concomitant]
  4. BENAZEPRIL HYDROCHLORIDE [Concomitant]
  5. FLUOXETINE [Concomitant]

REACTIONS (2)
  - DRUG INEFFECTIVE [None]
  - HYPERGLYCAEMIA [None]
